FAERS Safety Report 17802785 (Version 1)
Quarter: 2020Q2

REPORT INFORMATION
  Report Type: Report from Study
  Country: CA (occurrence: CA)
  Receive Date: 20200519
  Receipt Date: 20200519
  Transmission Date: 20200714
  Serious: Yes (Other)
  Sender: FDA-Public Use
  Company Number: CA-ROCHE-1445189

PATIENT
  Age: 29 Year
  Sex: Female
  Weight: 100 kg

DRUGS (6)
  1. TYLENOL [Concomitant]
     Active Substance: ACETAMINOPHEN
  2. ACETAMINOPHEN. [Concomitant]
     Active Substance: ACETAMINOPHEN
  3. ADVIL [IBUPROFEN] [Concomitant]
     Active Substance: IBUPROFEN
     Dosage: AS REQUIRED
     Route: 065
  4. ACTEMRA [Suspect]
     Active Substance: TOCILIZUMAB
     Indication: RHEUMATOID ARTHRITIS
     Route: 042
     Dates: start: 20140624
  5. ACTEMRA [Suspect]
     Active Substance: TOCILIZUMAB
     Route: 042
     Dates: start: 20160712
  6. METHOTREXATE. [Concomitant]
     Active Substance: METHOTREXATE

REACTIONS (25)
  - Infusion related reaction [Recovered/Resolved]
  - Endodontic procedure [Unknown]
  - Dental caries [Unknown]
  - Infection [Recovering/Resolving]
  - Contusion [Recovered/Resolved]
  - Heart rate decreased [Recovered/Resolved]
  - Blood pressure diastolic decreased [Unknown]
  - Arthralgia [Recovered/Resolved]
  - Pain [Recovered/Resolved]
  - Weight decreased [Unknown]
  - Weight increased [Recovered/Resolved]
  - Arthralgia [Unknown]
  - Infection [Recovered/Resolved]
  - Endodontic procedure [Recovered/Resolved]
  - Hypoaesthesia [Recovered/Resolved]
  - Pain [Unknown]
  - Abdominal pain [Recovered/Resolved]
  - Dental caries [Recovered/Resolved]
  - Weight decreased [Recovered/Resolved]
  - Rheumatoid nodule [Recovered/Resolved]
  - Nasopharyngitis [Recovered/Resolved]
  - Blood pressure increased [Recovered/Resolved]
  - Hypoaesthesia [Unknown]
  - Weight increased [Unknown]
  - Contusion [Unknown]

NARRATIVE: CASE EVENT DATE: 20140725
